FAERS Safety Report 8304086-3 (Version None)
Quarter: 2012Q2

REPORT INFORMATION
  Report Type: 
  Country: None (occurrence: None)
  Receive Date: 20120418
  Receipt Date: 20120403
  Transmission Date: 20120825
  Serious: Yes (Hospitalization)
  Sender: FDA-Public Use
  Company Number: 2012P1011892

PATIENT
  Sex: Female

DRUGS (1)
  1. METROGEL-VAGINAL [Suspect]
     Dosage: VAG
     Route: 067

REACTIONS (8)
  - SECRETION DISCHARGE [None]
  - FOREIGN BODY [None]
  - MOBILITY DECREASED [None]
  - BACK PAIN [None]
  - SPINAL CORD DISORDER [None]
  - PRODUCT QUALITY ISSUE [None]
  - CHILLS [None]
  - HYPERHIDROSIS [None]
